FAERS Safety Report 10367709 (Version 1)
Quarter: 2014Q3

REPORT INFORMATION
  Report Type: Spontaneous
  Country: DK (occurrence: DK)
  Receive Date: 20140807
  Receipt Date: 20140807
  Transmission Date: 20150326
  Serious: Yes (Other)
  Sender: FDA-Public Use
  Company Number: DK-JNJFOC-20140718488

PATIENT
  Age: 17 Year
  Sex: Female
  Weight: 60 kg

DRUGS (2)
  1. IMODIUM [Suspect]
     Active Substance: LOPERAMIDE HYDROCHLORIDE
     Indication: DIARRHOEA INFECTIOUS
     Dosage: STRENGTH: 2MG LOPERAMIDE HYDROCHLORIDE + 125MG SIMETHICONE
     Route: 065
     Dates: start: 20140714, end: 20140714
  2. IMODIUM [Suspect]
     Active Substance: LOPERAMIDE HYDROCHLORIDE
     Route: 065

REACTIONS (2)
  - Vomiting [Recovered/Resolved]
  - Syncope [Recovered/Resolved]

NARRATIVE: CASE EVENT DATE: 20140714
